FAERS Safety Report 23342372 (Version 6)
Quarter: 2024Q1

REPORT INFORMATION
  Report Type: Spontaneous
  Country: US (occurrence: US)
  Receive Date: 20231227
  Receipt Date: 20240208
  Transmission Date: 20240410
  Serious: No
  Sender: FDA-Public Use
  Company Number: US-AMGEN-USASP2023230703

PATIENT
  Age: 70 Year
  Sex: Male

DRUGS (1)
  1. REPATHA [Suspect]
     Active Substance: EVOLOCUMAB
     Indication: Product used for unknown indication
     Dosage: UNK
     Route: 065
     Dates: start: 20231111

REACTIONS (8)
  - Injection site indentation [Unknown]
  - Device difficult to use [Unknown]
  - Product preparation error [Unknown]
  - Wrong technique in product usage process [Unknown]
  - Incorrect dose administered by device [Unknown]
  - Product communication issue [Unknown]
  - Injection site haemorrhage [Unknown]
  - Device use error [Unknown]

NARRATIVE: CASE EVENT DATE: 20231111
